FAERS Safety Report 11667487 (Version 1)
Quarter: 2015Q4

REPORT INFORMATION
  Report Type: Spontaneous
  Country: US (occurrence: US)
  Receive Date: 20151027
  Receipt Date: 20151027
  Transmission Date: 20160304
  Serious: No
  Sender: FDA-Public Use
  Company Number: US-ELI_LILLY_AND_COMPANY-US201002007284

PATIENT
  Age: 67 Year
  Sex: Female

DRUGS (3)
  1. FORTEO [Suspect]
     Active Substance: TERIPARATIDE
     Indication: OSTEOPOROSIS
     Dosage: 20 UG, DAILY (1/D)
     Route: 065
     Dates: start: 200906
  2. XENAZINE [Concomitant]
     Active Substance: TETRABENAZINE
     Indication: DYSTONIA
  3. IRON [Concomitant]
     Active Substance: IRON
     Indication: ANAEMIA

REACTIONS (11)
  - Asthenia [Unknown]
  - Feeling of body temperature change [Unknown]
  - Fatigue [Unknown]
  - Restlessness [Not Recovered/Not Resolved]
  - Anaemia [Unknown]
  - Insomnia [Not Recovered/Not Resolved]
  - Hyperhidrosis [Unknown]
  - Thyroid disorder [Unknown]
  - Eating disorder [Unknown]
  - Platelet disorder [Unknown]
  - Blood potassium decreased [Recovered/Resolved]

NARRATIVE: CASE EVENT DATE: 200912
